FAERS Safety Report 9186260 (Version 2)
Quarter: 2013Q2

REPORT INFORMATION
  Report Type: Spontaneous
  Country: EG (occurrence: EG)
  Receive Date: 20130325
  Receipt Date: 20130502
  Transmission Date: 20140414
  Serious: Yes (Other)
  Sender: FDA-Public Use
  Company Number: EG-PFIZER INC-2013092570

PATIENT
  Age: 6 Month
  Sex: Male

DRUGS (2)
  1. UNASYN [Suspect]
     Dosage: 150 MG/KG, 3X/DAY
     Route: 042
     Dates: start: 20130316, end: 20130317
  2. FORTUM [Concomitant]

REACTIONS (2)
  - Pyrexia [Recovered/Resolved]
  - Skin discolouration [Recovered/Resolved]
